FAERS Safety Report 8444749-2 (Version None)
Quarter: 2012Q2

REPORT INFORMATION
  Report Type: 
  Country: None (occurrence: None)
  Receive Date: 20120323
  Receipt Date: 20110926
  Transmission Date: 20120825
  Serious: Yes (Hospitalization)
  Sender: FDA-Public Use
  Company Number: 163-21880-11082409

PATIENT
  Age: 66 Year
  Sex: Female

DRUGS (5)
  1. ZOLEDRONATE (ZOLEDRONIC ACID) (UNKNOWN) [Concomitant]
  2. BORTEZOMIB [Concomitant]
  3. REVLIMID [Suspect]
     Indication: MULTIPLE MYELOMA
     Dosage: 25 MG, DAILY FOR 14 DAYS, PO 5 MG, 1 IN 1 D, PO
     Route: 048
     Dates: start: 20110729, end: 20110808
  4. REVLIMID [Suspect]
     Indication: MULTIPLE MYELOMA
     Dosage: 25 MG, DAILY FOR 14 DAYS, PO 5 MG, 1 IN 1 D, PO
     Route: 048
     Dates: start: 20110801
  5. DEXAMETHASONE [Concomitant]

REACTIONS (1)
  - RENAL FAILURE ACUTE [None]
